FAERS Safety Report 9435401 (Version 1)
Quarter: 2013Q3

REPORT INFORMATION
  Report Type: Report from Study
  Country: CA (occurrence: CA)
  Receive Date: 20130801
  Receipt Date: 20130801
  Transmission Date: 20140515
  Serious: Yes (Hospitalization)
  Sender: FDA-Public Use
  Company Number: CA-JNJFOC-20130716943

PATIENT
  Age: 65 Year
  Sex: Male
  Weight: 106.3 kg

DRUGS (5)
  1. REMICADE [Suspect]
     Indication: RHEUMATOID ARTHRITIS
     Route: 042
     Dates: start: 20050627
  2. METHOTREXATE [Concomitant]
     Route: 065
  3. CRESTOR [Concomitant]
     Route: 065
  4. MOBIC [Concomitant]
     Route: 065
  5. FOLIC ACID [Concomitant]
     Route: 065

REACTIONS (1)
  - Knee operation [Recovering/Resolving]
